FAERS Safety Report 21293349 (Version 1)
Quarter: 2022Q3

REPORT INFORMATION
  Report Type: Other
  Country: FR (occurrence: FR)
  Receive Date: 20220905
  Receipt Date: 20220905
  Transmission Date: 20221027
  Serious: Yes (Other)
  Sender: FDA-Public Use
  Company Number: None

PATIENT
  Age: 32 Year
  Sex: Female
  Weight: 65 kg

DRUGS (6)
  1. VESICARE [Suspect]
     Active Substance: SOLIFENACIN SUCCINATE
     Indication: Vesicoureteric reflux
     Dosage: UNK UNK, UNKNOWN FREQ.
     Route: 048
     Dates: start: 2017, end: 2020
  2. SILODOSIN [Suspect]
     Active Substance: SILODOSIN
     Indication: Vesicoureteric reflux
     Dosage: UNK UNK, UNKNOWN FREQ.
     Route: 048
     Dates: start: 2017, end: 2020
  3. EBASTINE [Concomitant]
     Active Substance: EBASTINE
     Indication: Asthma
     Dosage: UNK UNK, UNKNOWN FREQ.
     Route: 048
  4. BILASTINE [Concomitant]
     Active Substance: BILASTINE
     Indication: Asthma
     Dosage: UNK UNK, UNKNOWN FREQ.
     Route: 048
  5. SERETIDE [Concomitant]
     Active Substance: FLUTICASONE PROPIONATE\SALMETEROL XINAFOATE
     Indication: Asthma
     Dosage: UNK UNK, UNKNOWN FREQ.
     Route: 050
  6. ALBUTEROL [Concomitant]
     Active Substance: ALBUTEROL
     Indication: Asthma
     Dosage: UNK UNK, UNKNOWN FREQ.
     Route: 050

REACTIONS (3)
  - Vulvovaginal dryness [Not Recovered/Not Resolved]
  - Dry skin [Not Recovered/Not Resolved]
  - Dry eye [Not Recovered/Not Resolved]

NARRATIVE: CASE EVENT DATE: 20180101
